FAERS Safety Report 5940240-3 (Version None)
Quarter: 2008Q4

REPORT INFORMATION
  Report Type: 
  Country: None (occurrence: None)
  Receive Date: 20081104
  Receipt Date: 20081028
  Transmission Date: 20090506
  Serious: Yes (Life-Threatening, Hospitalization, Disabling, Other)
  Sender: FDA-Public Use
  Company Number: US-BAYER-200833141NA

PATIENT
  Age: 61 Year
  Sex: Male
  Weight: 64 kg

DRUGS (17)
  1. SORAFENIB [Suspect]
     Indication: ADENOCARCINOMA PANCREAS
     Dosage: TOTAL DAILY DOSE: 800 MG  UNIT DOSE: 200 MG
     Route: 048
     Dates: start: 20080902, end: 20080908
  2. GEMCITABINE HCL [Suspect]
     Indication: ADENOCARCINOMA PANCREAS
     Route: 042
     Dates: start: 20080902, end: 20080908
  3. GEMCITABINE HCL [Suspect]
     Route: 042
     Dates: start: 20080915
  4. REGLAN [Interacting]
     Dosage: TOTAL DAILY DOSE: 40 MG
     Dates: start: 20080601, end: 20080908
  5. COMPAZINE [Interacting]
     Dosage: TOTAL DAILY DOSE: 40 MG
     Route: 048
     Dates: start: 20080827, end: 20080908
  6. NORCO [Concomitant]
     Route: 048
     Dates: start: 20080912
  7. NORCO [Concomitant]
     Route: 048
  8. COUMADIN [Concomitant]
     Dosage: TOTAL DAILY DOSE: 7 MG
  9. COUMADIN [Concomitant]
     Dosage: TOTAL DAILY DOSE: 5 MG
  10. NEXIUM [Concomitant]
     Dosage: TOTAL DAILY DOSE: 40 MG
  11. AMBIEN CR [Concomitant]
     Dosage: TOTAL DAILY DOSE: 12.5 MG
     Route: 048
     Dates: start: 20080905
  12. HYDROCODONE BITARTRATE [Concomitant]
     Indication: PAIN
  13. LORAZEPAM [Concomitant]
  14. MEGACE [Concomitant]
  15. CREON [Concomitant]
     Route: 048
     Dates: start: 20080912
  16. LOPERAMIDE HCL [Concomitant]
     Route: 048
     Dates: start: 20080912
  17. LOVENOX [Concomitant]
     Dosage: TOTAL DAILY DOSE: 100 MG
     Route: 058
     Dates: start: 20080912

REACTIONS (19)
  - ABDOMINAL PAIN UPPER [None]
  - ASTHENIA [None]
  - CATATONIA [None]
  - DROOLING [None]
  - DYSARTHRIA [None]
  - DYSKINESIA [None]
  - DYSPHAGIA [None]
  - EXTRAPYRAMIDAL DISORDER [None]
  - FATIGUE [None]
  - HYPERTONIA [None]
  - HYPOPHAGIA [None]
  - MASKED FACIES [None]
  - MUSCLE CONTRACTIONS INVOLUNTARY [None]
  - MUSCULOSKELETAL STIFFNESS [None]
  - OBSTRUCTION GASTRIC [None]
  - PANCREATIC CARCINOMA [None]
  - SPEECH DISORDER [None]
  - TREMOR [None]
  - UPPER GASTROINTESTINAL HAEMORRHAGE [None]
